FAERS Safety Report 8346341-7 (Version None)
Quarter: 2012Q2

REPORT INFORMATION
  Report Type: 
  Country: None (occurrence: None)
  Receive Date: 20120509
  Receipt Date: 20120501
  Transmission Date: 20120825
  Serious: Yes (Other)
  Sender: FDA-Public Use
  Company Number: US-PFIZER INC-2012024114

PATIENT
  Sex: Female

DRUGS (4)
  1. AZOPT [Concomitant]
     Dosage: UNK
  2. BRIMONIDINE TARTRATE [Concomitant]
     Dosage: UNK
  3. XALATAN [Suspect]
     Indication: GLAUCOMA
     Dosage: UNK, DAILY
     Dates: start: 20020101
  4. XALATAN [Suspect]
     Indication: PROPHYLAXIS

REACTIONS (2)
  - WEIGHT DECREASED [None]
  - ADRENAL CARCINOMA [None]
